FAERS Safety Report 4744650-1 (Version None)
Quarter: 2005Q3

REPORT INFORMATION
  Report Type: 
  Country: None (occurrence: None)
  Receive Date: 20050812
  Receipt Date: 20050812
  Transmission Date: 20060218
  Serious: Yes (Hospitalization)
  Sender: FDA-Public Use
  Company Number: None

PATIENT
  Age: 54 Year
  Sex: Male

DRUGS (2)
  1. TEMOZOLOMIDE [Suspect]
  2. IRINOTECAN [Suspect]

REACTIONS (8)
  - DECREASED APPETITE [None]
  - FATIGUE [None]
  - MALIGNANT NEOPLASM PROGRESSION [None]
  - NAUSEA [None]
  - NECROSIS [None]
  - ORAL INTAKE REDUCED [None]
  - RADIATION INJURY [None]
  - VOMITING [None]
